FAERS Safety Report 9475284 (Version 1)
Quarter: 2013Q3

REPORT INFORMATION
  Report Type: Spontaneous
  Country: DE (occurrence: None)
  Receive Date: 20130820
  Receipt Date: 20130820
  Transmission Date: 20140515
  Serious: Yes (Other)
  Sender: FDA-Public Use
  Company Number: AUR-APL-2013-06819

PATIENT
  Age: 48 Year
  Sex: Male

DRUGS (2)
  1. PRAMIPEXOLE [Suspect]
     Indication: PARKINSON^S DISEASE
     Route: 048
     Dates: start: 201204, end: 20120423
  2. AZILECT (RASAGILINE MESYLATE) [Concomitant]

REACTIONS (3)
  - Dyspnoea [None]
  - Oedema peripheral [None]
  - Right ventricular failure [None]
